FAERS Safety Report 8978146 (Version 1)
Quarter: 2012Q4

REPORT INFORMATION
  Report Type: 
  Country: US (occurrence: US)
  Receive Date: 20121220
  Receipt Date: 20121220
  Transmission Date: 20130627
  Serious: No
  Sender: FDA-Public Use
  Company Number: US-B.I. PHARMACEUTICALS,INC./RIDGEFIELD-2012-BI-03031BP

PATIENT
  Sex: Male

DRUGS (1)
  1. VIRAMUNE [Suspect]
     Route: 048
     Dates: end: 201211

REACTIONS (1)
  - CD4 lymphocytes increased [Unknown]
